FAERS Safety Report 5551259-9 (Version None)
Quarter: 2007Q4

REPORT INFORMATION
  Report Type: 
  Country: None (occurrence: None)
  Receive Date: 20071210
  Receipt Date: 20071115
  Transmission Date: 20080405
  Serious: Yes (Death, Life-Threatening, Other)
  Sender: FDA-Public Use
  Company Number: 2007US002698

PATIENT
  Age: 43 Year
  Sex: Female
  Weight: 113 kg

DRUGS (46)
  1. AMBISOME [Suspect]
     Indication: ANTIFUNGAL PROPHYLAXIS
     Dosage: 3 MG/KG, Q3D
     Dates: start: 20071007, end: 20071013
  2. RASBURICASE                 (RASBURICASE) [Concomitant]
  3. HYDROXYUREA [Concomitant]
  4. OMEPRAZOLE [Concomitant]
  5. ACYCLOVIR [Concomitant]
  6. POTASSIUM CHLORIDE [Concomitant]
  7. SALINEX         (SODIUM CHLORIDE) [Concomitant]
  8. BICARBONAT               (SODIUM BICARBONATE) [Concomitant]
  9. ALLOPURINOL [Concomitant]
  10. CEFTAZIDIME [Concomitant]
  11. AMIKACIN [Concomitant]
  12. PREDNISONE [Concomitant]
  13. ETACRYNIC ACID                     (ETACRYNIC ACID) [Concomitant]
  14. PHYTONADIONE [Concomitant]
  15. MEROPENEM                   (MEROPENEM) [Concomitant]
  16. MAGNESIUM [Concomitant]
  17. MORPHINE SULFATE [Concomitant]
  18. FLUDARABINE PHOSPHATE [Concomitant]
  19. TREOSULFAN                     (TREOSULFAN) [Concomitant]
  20. COTRIM [Concomitant]
  21. GANCICLOVIR [Concomitant]
  22. ACETAZOLAMIDE [Concomitant]
  23. ONDANSETRON HCL [Concomitant]
  24. DEXAMETHASONE TAB [Concomitant]
  25. ALBUMIN (HUMAN) [Concomitant]
  26. FUROSEMIDE [Concomitant]
  27. DIANEAL PD1 GLUCOSA (GLUCOSE, SODIUM LACTATE, MAGNESIUM CHLORIDE HEXAH [Concomitant]
  28. NACL                (SODIUM CHLORIDE) [Concomitant]
  29. ATG                 (ANTITHYMOCYTE IMMUNOGLOBULIN) [Concomitant]
  30. CHLORPHENIRAMINE TAB [Concomitant]
  31. CALCIUM         (CALCIUM) [Concomitant]
  32. RAPAMYCIN                   (SIROLIMUS) [Concomitant]
  33. RETIUXIMAB                               (RITUXIMAB) [Concomitant]
  34. ACETAMINOPHEN [Concomitant]
  35. MYCOPHENOLATE MOFETIL [Concomitant]
  36. PIPERACILLIN [Concomitant]
  37. CLINDAMYCIN HCL [Concomitant]
  38. DIAZEPAM [Concomitant]
  39. HYDROCORTISONE [Concomitant]
  40. VANCOMYCIN [Concomitant]
  41. TRAMADOLE               (TRAMADOL HYDROCHLORIDE) [Concomitant]
  42. LOPERAMIDE [Concomitant]
  43. AZITHORMYCIN                  (AZITHORMYCIN) [Concomitant]
  44. PENTAMIDINE                 (PENTAMIDINE) [Concomitant]
  45. FOSCARNET [Concomitant]
  46. CELECOXIB [Concomitant]

REACTIONS (27)
  - ACIDOSIS [None]
  - AGITATION [None]
  - ANAEMIA [None]
  - ANURIA [None]
  - APLASIA [None]
  - ATRIAL FIBRILLATION [None]
  - BLOOD CREATININE INCREASED [None]
  - CARDIAC ARREST [None]
  - CEREBRAL HAEMORRHAGE [None]
  - DEAFNESS [None]
  - DIALYSIS [None]
  - DISEASE PROGRESSION [None]
  - HYPOKALAEMIA [None]
  - HYPOTENSION [None]
  - NEPHROPATHY TOXIC [None]
  - NEUTROPENIA [None]
  - NO THERAPEUTIC RESPONSE [None]
  - PAIN [None]
  - PNEUMONIA [None]
  - PSEUDOMONAS INFECTION [None]
  - RENAL FAILURE [None]
  - SEPTIC SHOCK [None]
  - SERRATIA INFECTION [None]
  - STAPHYLOCOCCAL INFECTION [None]
  - SUDDEN DEATH [None]
  - THROMBOCYTOPENIA [None]
  - VENTRICULAR FIBRILLATION [None]
